FAERS Safety Report 9822631 (Version 1)
Quarter: 2014Q1

REPORT INFORMATION
  Report Type: Spontaneous
  Country: JP (occurrence: JP)
  Receive Date: 20140116
  Receipt Date: 20140116
  Transmission Date: 20141002
  Serious: Yes (Hospitalization, Other)
  Sender: FDA-Public Use
  Company Number: PHHY2014JP002645

PATIENT
  Age: 78 Year
  Sex: Male

DRUGS (8)
  1. METFORMIN [Suspect]
     Indication: TYPE 2 DIABETES MELLITUS
     Dosage: 500 MG, PER DAY
  2. MIGLITOL [Suspect]
     Indication: TYPE 2 DIABETES MELLITUS
     Dosage: 225 MG, PER DAY
  3. REPAGLINIDE [Suspect]
     Indication: TYPE 2 DIABETES MELLITUS
     Dosage: 0.75 MG, PER DAY
  4. SITAGLIPTIN [Suspect]
     Indication: TYPE 2 DIABETES MELLITUS
     Dosage: 50 MG, PER DAY
  5. AMLODIPINE [Concomitant]
  6. ALISKIREN [Concomitant]
  7. CAMOSTAT MESILATE [Concomitant]
  8. MOSAPRIDE CITRATE [Concomitant]

REACTIONS (5)
  - Ileus [Unknown]
  - Vomiting [Unknown]
  - Abdominal pain lower [Unknown]
  - Nausea [Unknown]
  - Blood glucose increased [Unknown]
